FAERS Safety Report 22894140 (Version 2)
Quarter: 2023Q4

REPORT INFORMATION
  Report Type: Spontaneous
  Country: US (occurrence: US)
  Receive Date: 20230901
  Receipt Date: 20231019
  Transmission Date: 20240109
  Serious: Yes (Hospitalization, Disabling, Other)
  Sender: FDA-Public Use
  Company Number: US-CELLTRION INC.-2023US016959

PATIENT

DRUGS (1)
  1. INFLECTRA [Suspect]
     Active Substance: INFLIXIMAB-DYYB
     Indication: Product used for unknown indication
     Route: 065

REACTIONS (15)
  - Disability [Unknown]
  - Septic rash [Unknown]
  - Infection [Not Recovered/Not Resolved]
  - Oral bacterial infection [Not Recovered/Not Resolved]
  - Skin bacterial infection [Not Recovered/Not Resolved]
  - Emotional distress [Unknown]
  - Ill-defined disorder [Unknown]
  - Decreased immune responsiveness [Unknown]
  - Drug hypersensitivity [Unknown]
  - Pain [Unknown]
  - Adverse drug reaction [Unknown]
  - Fatigue [Unknown]
  - Psoriasis [Unknown]
  - Visual impairment [Unknown]
  - Drug ineffective [Unknown]
